FAERS Safety Report 21259080 (Version 1)
Quarter: 2022Q3

REPORT INFORMATION
  Report Type: Spontaneous
  Country: US (occurrence: None)
  Receive Date: 20220825
  Receipt Date: 20220825
  Transmission Date: 20221026
  Serious: No
  Sender: FDA-Public Use
  Company Number: None

PATIENT
  Sex: Female

DRUGS (2)
  1. PROMACTA [Suspect]
     Active Substance: ELTROMBOPAG OLAMINE
     Indication: Plasma cell myeloma
     Dosage: FREQUENCY : DAILY;?
     Route: 048
     Dates: start: 20210816
  2. XPOVIO [Concomitant]
     Active Substance: SELINEXOR
     Dates: start: 20210318

REACTIONS (3)
  - Drug ineffective [None]
  - Platelet count decreased [None]
  - Therapy interrupted [None]
